FAERS Safety Report 24816016 (Version 2)
Quarter: 2025Q3

REPORT INFORMATION
  Report Type: Spontaneous
  Country: CN (occurrence: CN)
  Receive Date: 20250107
  Receipt Date: 20250802
  Transmission Date: 20251021
  Serious: Yes (Other)
  Sender: ALEXION PHARMACEUTICALS
  Company Number: CN-ASTRAZENECA-202501CHN002163CN

PATIENT
  Age: 42 Year
  Sex: Male
  Weight: 130 kg

DRUGS (1)
  1. BRILINTA [Suspect]
     Active Substance: TICAGRELOR
     Indication: Symptomatic treatment
     Dosage: 90 MILLIGRAM, BID
     Dates: start: 20241014, end: 20241017

REACTIONS (4)
  - Upper gastrointestinal haemorrhage [Recovered/Resolved]
  - Cardiac flutter [Recovered/Resolved]
  - Asthenia [Recovered/Resolved]
  - Hyperhidrosis [Recovered/Resolved]

NARRATIVE: CASE EVENT DATE: 20241017
